FAERS Safety Report 7912933-X (Version None)
Quarter: 2011Q4

REPORT INFORMATION
  Report Type: 
  Country: None (occurrence: None)
  Receive Date: 20111114
  Receipt Date: 20111103
  Transmission Date: 20120403
  Serious: Yes (Hospitalization)
  Sender: FDA-Public Use
  Company Number: FR-PERRIGO-11FR009514

PATIENT
  Age: 25 Year
  Sex: Female

DRUGS (2)
  1. ACETAMINOPHEN [Suspect]
     Indication: INTENTIONAL OVERDOSE
     Dosage: 24 G, SINGLE
     Route: 048
  2. CLOBAZAM [Concomitant]
     Indication: EPILEPSY
     Dosage: UNK
     Route: 065

REACTIONS (11)
  - PROTHROMBIN LEVEL DECREASED [None]
  - CHORIOAMNIONITIS [None]
  - MATERNAL EXPOSURE DURING PREGNANCY [None]
  - HEPATIC ENCEPHALOPATHY [None]
  - ASPARTATE AMINOTRANSFERASE INCREASED [None]
  - PYREXIA [None]
  - ALANINE AMINOTRANSFERASE INCREASED [None]
  - FACTOR V INHIBITION [None]
  - OVERDOSE [None]
  - BLOOD BILIRUBIN INCREASED [None]
  - LIVER INJURY [None]
